FAERS Safety Report 24351358 (Version 1)
Quarter: 2024Q3

REPORT INFORMATION
  Report Type: Report from Study
  Country: AT (occurrence: AT)
  Receive Date: 20240923
  Receipt Date: 20240923
  Transmission Date: 20241016
  Serious: No
  Sender: ROCHE
  Company Number: AT-ROCHE-2217090

PATIENT
  Age: 42 Year
  Sex: Female
  Weight: 58.0 kg

DRUGS (46)
  1. TRASTUZUMAB [Suspect]
     Active Substance: TRASTUZUMAB
     Indication: Breast cancer metastatic
     Dosage: MOST RECENT DOSE PRIOR TO THE EVENT: 28/JUL/2018
     Route: 042
     Dates: start: 20180109
  2. TRASTUZUMAB [Suspect]
     Active Substance: TRASTUZUMAB
     Route: 042
     Dates: start: 20180130, end: 20180629
  3. TRASTUZUMAB [Suspect]
     Active Substance: TRASTUZUMAB
     Route: 042
     Dates: start: 20180828, end: 20190102
  4. TRASTUZUMAB [Suspect]
     Active Substance: TRASTUZUMAB
     Route: 042
     Dates: start: 20190222, end: 20200316
  5. TRASTUZUMAB [Suspect]
     Active Substance: TRASTUZUMAB
     Route: 042
     Dates: start: 20200618, end: 20200730
  6. PERTUZUMAB [Suspect]
     Active Substance: PERTUZUMAB
     Indication: Breast cancer metastatic
     Dosage: MOST RECENT DOSE PRIOR TO THE EVENT: 09/JAN/2018
     Route: 042
     Dates: start: 20180109, end: 20180109
  7. PERTUZUMAB [Suspect]
     Active Substance: PERTUZUMAB
     Route: 042
     Dates: start: 20180130, end: 20180629
  8. PERTUZUMAB [Suspect]
     Active Substance: PERTUZUMAB
     Route: 042
     Dates: start: 20180828, end: 20190102
  9. PERTUZUMAB [Suspect]
     Active Substance: PERTUZUMAB
     Route: 042
     Dates: start: 20190222, end: 20200316
  10. PERTUZUMAB [Suspect]
     Active Substance: PERTUZUMAB
     Route: 042
     Dates: start: 20200618, end: 20200730
  11. DOCETAXEL [Suspect]
     Active Substance: DOCETAXEL\DOCETAXEL ANHYDROUS
     Indication: Breast cancer
     Dosage: LAST DOSE ON 08/JUN/2018
     Route: 042
     Dates: start: 20180109
  12. ESOMEPRAZOLE [Concomitant]
     Active Substance: ESOMEPRAZOLE
     Dates: start: 20180115
  13. ZOFRAN [Concomitant]
     Active Substance: ONDANSETRON HYDROCHLORIDE
     Dates: start: 20180109
  14. DIPHENHYDRAMINE HYDROCHLORIDE [Concomitant]
     Active Substance: DIPHENHYDRAMINE HYDROCHLORIDE
     Dates: start: 20180109
  15. PASPERTIN [Concomitant]
     Indication: Pancreatitis
     Dates: start: 20180719, end: 20180719
  16. NOVALGIN (AUSTRIA) [Concomitant]
     Indication: Pancreatitis
     Dates: start: 20180719, end: 20180719
  17. NOVALGIN (AUSTRIA) [Concomitant]
     Indication: Pancreatitis
     Dates: start: 20180719, end: 20180730
  18. NOVALGIN (AUSTRIA) [Concomitant]
     Dates: start: 20180903
  19. BUTYLSCOPOLAMINE [Concomitant]
     Active Substance: BUTYLSCOPOLAMINE
     Indication: Pancreatitis
     Dates: start: 20180719, end: 20180719
  20. BUTYLSCOPOLAMINE BROMIDE [Concomitant]
     Active Substance: BUTYLSCOPOLAMINE BROMIDE
     Indication: Pancreatitis
     Dates: start: 20180719, end: 20180719
  21. NALBUPHINE [Concomitant]
     Active Substance: NALBUPHINE
     Indication: Pancreatitis
     Dates: start: 20180719, end: 20180719
  22. METRONIDAZOLE [Concomitant]
     Active Substance: METRONIDAZOLE
     Dates: start: 20180719, end: 20180805
  23. PANCRELIPASE [Concomitant]
     Active Substance: PANCRELIPASE\PANCRELIPASE AMYLASE\PANCRELIPASE LIPASE\PANCRELIPASE PROTEASE
     Dates: start: 20180720
  24. ANTIFLAT [Concomitant]
     Dates: start: 20180725, end: 20180728
  25. ZOLPIDEM TARTRATE [Concomitant]
     Active Substance: ZOLPIDEM TARTRATE
     Dates: start: 20180720, end: 20180725
  26. DICLOFENAC SODIUM\ORPHENADRINE CITRATE [Concomitant]
     Active Substance: DICLOFENAC SODIUM\ORPHENADRINE CITRATE
     Indication: Cholelithiasis
     Dates: start: 20180719, end: 20180724
  27. DICLOFENAC SODIUM\ORPHENADRINE CITRATE [Concomitant]
     Active Substance: DICLOFENAC SODIUM\ORPHENADRINE CITRATE
     Dates: start: 20180808, end: 20180809
  28. CEFUROXIME [Concomitant]
     Active Substance: CEFUROXIME
     Indication: Pancreatitis
     Dates: start: 20180719, end: 20180805
  29. ASCORBIC ACID\CALCIUM PHOSPHATE\CHOLECALCIFEROL\CITRIC ACID MONOHYDRAT [Concomitant]
     Active Substance: ASCORBIC ACID\CALCIUM PHOSPHATE\CHOLECALCIFEROL\CITRIC ACID MONOHYDRATE
     Dates: start: 20180115
  30. LIPEGFILGRASTIM [Concomitant]
     Active Substance: LIPEGFILGRASTIM
  31. DEXAMETHASONE [Concomitant]
     Active Substance: DEXAMETHASONE
  32. ACETAMINOPHEN [Concomitant]
     Active Substance: ACETAMINOPHEN
  33. DEXPANTHENOL [Concomitant]
     Active Substance: DEXPANTHENOL
  34. ZOFRAN [Concomitant]
     Active Substance: ONDANSETRON HYDROCHLORIDE
  35. POLYETHYLENE GLYCOL 4000 [Concomitant]
     Active Substance: POLYETHYLENE GLYCOL 4000
  36. EMEND [Concomitant]
     Active Substance: APREPITANT
  37. XYLANAEST PURUM [Concomitant]
  38. ESOMEPRAZOLE [Concomitant]
     Active Substance: ESOMEPRAZOLE
  39. LOVENOX [Concomitant]
     Active Substance: ENOXAPARIN SODIUM
  40. FLUCLOXACILLIN [Concomitant]
     Active Substance: FLUCLOXACILLIN
  41. ACETAMINOPHEN [Concomitant]
     Active Substance: ACETAMINOPHEN
  42. KETOPROFEN [Concomitant]
     Active Substance: KETOPROFEN
  43. LYRICA [Concomitant]
     Active Substance: PREGABALIN
  44. ZOLPIDEM [Concomitant]
     Active Substance: ZOLPIDEM TARTRATE
  45. CEFUROXIME [Concomitant]
     Active Substance: CEFUROXIME
  46. XGEVA [Concomitant]
     Active Substance: DENOSUMAB
     Indication: Breast cancer
     Route: 058
     Dates: start: 20180109

REACTIONS (1)
  - Cholelithiasis [Recovered/Resolved]

NARRATIVE: CASE EVENT DATE: 20180807
